FAERS Safety Report 8049250-6 (Version None)
Quarter: 2012Q1

REPORT INFORMATION
  Report Type: 
  Country: None (occurrence: None)
  Receive Date: 20120117
  Receipt Date: 20120111
  Transmission Date: 20120608
  Serious: Yes (Other)
  Sender: FDA-Public Use
  Company Number: US-AMGEN-QUU443529

PATIENT
  Age: 63 Year
  Sex: Male
  Weight: 76.8 kg

DRUGS (13)
  1. DANAZOL [Concomitant]
     Dosage: 2 UNK, Q12H
  2. METOPROLOL TARTRATE [Concomitant]
     Dosage: 25 MG, Q12H
     Route: 048
  3. NEXIUM [Concomitant]
     Dosage: 40 MG, QD
  4. NPLATE [Suspect]
     Dosage: 80 MUG, UNK
     Dates: start: 20100923
  5. NITROGLYCERIN [Concomitant]
  6. OXYCODONE HCL [Concomitant]
  7. ACYCLOVIR [Concomitant]
     Dosage: 400 MG, Q12H
  8. FLUCONAZOLE [Concomitant]
     Dosage: 400 MG, QD
     Route: 048
  9. ISOSORBIDE MONONITRATE [Concomitant]
     Dosage: 30 MG, UNK
     Route: 048
  10. VITAMIN D [Concomitant]
     Dosage: 1000 MG, QD
     Route: 048
  11. NPLATE [Suspect]
     Indication: IDIOPATHIC THROMBOCYTOPENIC PURPURA
     Dosage: 80 MUG, UNK
     Route: 058
     Dates: start: 20100923, end: 20100923
  12. DIGOXIN [Concomitant]
     Dosage: 250 MUG, QD
     Route: 048
  13. BACTRIM DS [Concomitant]

REACTIONS (3)
  - OEDEMA PERIPHERAL [None]
  - DEEP VEIN THROMBOSIS [None]
  - PAIN IN EXTREMITY [None]
